FAERS Safety Report 23164583 (Version 1)
Quarter: 2023Q4

REPORT INFORMATION
  Report Type: Spontaneous
  Country: US (occurrence: None)
  Receive Date: 20231108
  Receipt Date: 20231108
  Transmission Date: 20240110
  Serious: Yes (Hospitalization)
  Sender: FDA-Public Use
  Company Number: None

PATIENT
  Age: 53 Year
  Sex: Female
  Weight: 111.6 kg

DRUGS (5)
  1. LENVIMA [Suspect]
     Active Substance: LENVATINIB
     Indication: Ovarian cancer metastatic
     Dosage: FREQUENCY : DAILY;?
     Route: 048
     Dates: start: 20231016, end: 20231103
  2. KEYTRUDA [Suspect]
     Active Substance: PEMBROLIZUMAB
     Indication: Ovarian cancer metastatic
     Dosage: OTHER FREQUENCY : EVERY 3 WEEKS;?
     Route: 042
     Dates: start: 20231016, end: 20231030
  3. TAXOL [Suspect]
     Active Substance: PACLITAXEL
     Dates: start: 20231016, end: 20231016
  4. TAXOL [Concomitant]
     Active Substance: PACLITAXEL
     Dates: start: 20231023, end: 20231023
  5. TAXOL [Concomitant]
     Active Substance: PACLITAXEL
     Dates: start: 20231030, end: 20231030

REACTIONS (1)
  - Febrile neutropenia [None]

NARRATIVE: CASE EVENT DATE: 20231107
